FAERS Safety Report 22246290 (Version 4)
Quarter: 2023Q2

REPORT INFORMATION
  Report Type: Report from Study
  Country: BE (occurrence: BE)
  Receive Date: 20230424
  Receipt Date: 20230628
  Transmission Date: 20230722
  Serious: Yes (Hospitalization)
  Sender: FDA-Public Use
  Company Number: BE-SA-SAC20230419001045

PATIENT
  Age: 57 Year
  Sex: Male
  Weight: 65.6 kg

DRUGS (8)
  1. ISATUXIMAB [Suspect]
     Active Substance: ISATUXIMAB
     Indication: Minimal residual disease
     Dosage: 630 MG, QW
     Route: 042
     Dates: start: 20230404, end: 20230404
  2. ISATUXIMAB [Suspect]
     Active Substance: ISATUXIMAB
     Dosage: 630 MG, QW
     Route: 042
     Dates: start: 20230411, end: 20230411
  3. CARFILZOMIB [Suspect]
     Active Substance: CARFILZOMIB
     Indication: Minimal residual disease
     Dosage: 100 MG, QW
     Route: 042
     Dates: start: 20230404, end: 20230404
  4. CARFILZOMIB [Suspect]
     Active Substance: CARFILZOMIB
     Dosage: 100 MG, QW
     Route: 042
     Dates: start: 20230411, end: 20230411
  5. LENALIDOMIDE [Suspect]
     Active Substance: LENALIDOMIDE
     Indication: Minimal residual disease
     Dosage: 25 MG, QD
     Route: 048
     Dates: start: 20230404, end: 20230404
  6. LENALIDOMIDE [Suspect]
     Active Substance: LENALIDOMIDE
     Dosage: 25 MG, QD
     Route: 048
     Dates: start: 20230414, end: 20230414
  7. DEXAMETHASONE [Suspect]
     Active Substance: DEXAMETHASONE
     Indication: Minimal residual disease
     Dosage: 40 MG, QW
     Route: 048
     Dates: start: 20230404, end: 20230404
  8. DEXAMETHASONE [Suspect]
     Active Substance: DEXAMETHASONE
     Dosage: 40 MG, QW
     Route: 048
     Dates: start: 20230411, end: 20230411

REACTIONS (1)
  - Rash maculo-papular [Recovered/Resolved with Sequelae]

NARRATIVE: CASE EVENT DATE: 20230413
